FAERS Safety Report 12091264 (Version 1)
Quarter: 2016Q1

REPORT INFORMATION
  Report Type: Report from Study
  Country: US (occurrence: US)
  Receive Date: 20160218
  Receipt Date: 20160218
  Transmission Date: 20160526
  Serious: Yes (Hospitalization)
  Sender: FDA-Public Use
  Company Number: US-MYLANLABS-2016M1006280

PATIENT

DRUGS (3)
  1. ATENOLOL. [Suspect]
     Active Substance: ATENOLOL
     Indication: PRODUCT USED FOR UNKNOWN INDICATION
     Route: 065
  2. BUPIVACAINE [Concomitant]
     Active Substance: BUPIVACAINE
     Indication: ANALGESIC THERAPY
     Dosage: A SINGLE DOSE OF 20 ML OF .25% BUPIVACAINE WAS INSTILLED INTRAPERITONEALLY
     Route: 033
  3. BUPIVACAINE [Concomitant]
     Active Substance: BUPIVACAINE
     Dosage: REPERITONEAL INJECTIONS OF 10 ML OF .25% BUPIVACAINE AT THE PORT SITES

REACTIONS (2)
  - Syncope [Recovered/Resolved]
  - Sinus bradycardia [Recovered/Resolved]
